FAERS Safety Report 8018113-4 (Version None)
Quarter: 2012Q1

REPORT INFORMATION
  Report Type: 
  Country: None (occurrence: None)
  Receive Date: 20120103
  Receipt Date: 20111129
  Transmission Date: 20120608
  Serious: No
  Sender: FDA-Public Use
  Company Number: AT-ELI_LILLY_AND_COMPANY-AT201105006458

PATIENT
  Age: 13 Year
  Sex: Female

DRUGS (1)
  1. STRATTERA [Suspect]
     Indication: ATTENTION DEFICIT/HYPERACTIVITY DISORDER
     Dosage: 60 MG, UNK
     Route: 048

REACTIONS (1)
  - ELECTROCARDIOGRAM QT PROLONGED [None]
